FAERS Safety Report 14997341 (Version 2)
Quarter: 2018Q3

REPORT INFORMATION
  Report Type: Report from Study
  Country: DK (occurrence: DK)
  Receive Date: 20180611
  Receipt Date: 20180703
  Transmission Date: 20181010
  Serious: Yes (Other)
  Sender: FDA-Public Use
  Company Number: DK-MYLANLABS-2018M1031844

PATIENT
  Age: 34 Year
  Sex: Female
  Weight: 56 kg

DRUGS (2)
  1. GEMADOL RETARD [Suspect]
     Active Substance: TRAMADOL HYDROCHLORIDE
     Indication: BACK PAIN
     Dosage: STYRKE: 50 MG. UDTRAPNING OPSTARTET 30AUG2017. MIDT NOVEMBER FORTSAT 50 MG 1 GANG DAGLIG
     Route: 048
     Dates: start: 20170308
  2. TRAMADOL. [Suspect]
     Active Substance: TRAMADOL
     Indication: PAIN
     Dosage: 100 MG, UNK, STYRKE: 50 MG
     Route: 048
     Dates: start: 20170117, end: 201703

REACTIONS (7)
  - Restlessness [Recovering/Resolving]
  - Withdrawal syndrome [Recovering/Resolving]
  - Dependence [Not Recovered/Not Resolved]
  - Depressed mood [Recovering/Resolving]
  - Anxiety [Recovering/Resolving]
  - Hyperhidrosis [Recovering/Resolving]
  - Drug withdrawal syndrome [Recovering/Resolving]

NARRATIVE: CASE EVENT DATE: 20170210
